FAERS Safety Report 24227984 (Version 5)
Quarter: 2025Q1

REPORT INFORMATION
  Report Type: Report from Study
  Country: US (occurrence: US)
  Receive Date: 20240820
  Receipt Date: 20250125
  Transmission Date: 20250409
  Serious: Yes (Other)
  Sender: ABBVIE
  Company Number: US-ABBVIE-5871327

PATIENT
  Age: 40 Year
  Sex: Female
  Weight: 159 kg

DRUGS (7)
  1. HUMIRA [Suspect]
     Active Substance: ADALIMUMAB
     Indication: Hidradenitis
     Dosage: CITRATE FREE?STRENGTH: 40MG/0.4ML
     Route: 058
     Dates: start: 20230607
  2. HUMIRA [Suspect]
     Active Substance: ADALIMUMAB
  3. COLCHICINE [Concomitant]
     Active Substance: COLCHICINE
     Indication: Nephrolithiasis
  4. MINOCYCLINE [Suspect]
     Active Substance: MINOCYCLINE HYDROCHLORIDE
     Indication: Hidradenitis
     Route: 048
     Dates: start: 201910
  5. PRILOSEC [Concomitant]
     Active Substance: OMEPRAZOLE MAGNESIUM
     Indication: Gastrooesophageal reflux disease
  6. CHLORTHALIDONE [Concomitant]
     Active Substance: CHLORTHALIDONE
     Indication: Nephrolithiasis
     Dosage: PILL
     Route: 048
     Dates: start: 2021
  7. XARELTO [Suspect]
     Active Substance: RIVAROXABAN
     Indication: Thrombosis
     Route: 065

REACTIONS (20)
  - Vascular rupture [Recovering/Resolving]
  - Dizziness [Recovering/Resolving]
  - Hidradenitis [Recovering/Resolving]
  - Lupus-like syndrome [Recovered/Resolved]
  - Premenstrual syndrome [Recovering/Resolving]
  - Skin fragility [Recovering/Resolving]
  - Burning sensation [Recovered/Resolved]
  - Myalgia [Recovered/Resolved]
  - Skin irritation [Not Recovered/Not Resolved]
  - Joint stiffness [Recovered/Resolved]
  - Immobile [Recovered/Resolved]
  - Skin haemorrhage [Not Recovered/Not Resolved]
  - Lupus-like syndrome [Recovered/Resolved]
  - Scar [Not Recovered/Not Resolved]
  - Myalgia [Recovering/Resolving]
  - Burning sensation [Recovering/Resolving]
  - Immobile [Recovering/Resolving]
  - Joint stiffness [Recovering/Resolving]
  - Wound [Not Recovered/Not Resolved]
  - Feeling abnormal [Recovered/Resolved]

NARRATIVE: CASE EVENT DATE: 20230801
